FAERS Safety Report 5369912-9 (Version None)
Quarter: 2007Q2

REPORT INFORMATION
  Report Type: 
  Country: None (occurrence: None)
  Receive Date: 20070620
  Receipt Date: 20070607
  Transmission Date: 20071010
  Serious: Yes (Death, Other)
  Sender: FDA-Public Use
  Company Number: WAES 0706KOR00002

PATIENT
  Age: 30 Year
  Sex: Male

DRUGS (8)
  1. CANCIDAS [Suspect]
     Indication: BRONCHOPULMONARY ASPERGILLOSIS
     Dosage: 70 MG/ DAILY IV
     Route: 042
     Dates: start: 20061106, end: 20061106
  2. AMPHOTERICIN B [Concomitant]
  3. IMIPENEM [Concomitant]
  4. ISEPAMICINSO4 [Concomitant]
  5. ITRACONAZOLE [Concomitant]
  6. ROXITHROMYCIN [Concomitant]
  7. TEICOPLANIN [Concomitant]
  8. VORICONAZOLE [Concomitant]

REACTIONS (3)
  - CONDITION AGGRAVATED [None]
  - HYPERBILIRUBINAEMIA [None]
  - PNEUMONIA [None]
